FAERS Safety Report 9019623 (Version 4)
Quarter: 2013Q4

REPORT INFORMATION
  Report Type: Report from Study
  Country: JP (occurrence: JP)
  Receive Date: 20130118
  Receipt Date: 20131230
  Transmission Date: 20140711
  Serious: Yes (Other)
  Sender: FDA-Public Use
  Company Number: JP-VERTEX PHARMACEUTICALS INC.-2013-000777

PATIENT
  Age: 53 Year
  Sex: Male

DRUGS (21)
  1. VX-950 (TELAPREVIR) [Suspect]
     Indication: CHRONIC HEPATITIS C
     Dosage: 2250 MG, QD
     Route: 048
     Dates: start: 20120717, end: 20120813
  2. VX-950 (TELAPREVIR) [Suspect]
     Dosage: 1500 MG, QD
     Route: 048
     Dates: start: 20120814, end: 20121009
  3. REBETOL [Suspect]
     Indication: CHRONIC HEPATITIS C
     Dosage: 600 MG, QD
     Route: 048
     Dates: start: 20120717, end: 20120806
  4. REBETOL [Suspect]
     Dosage: 400 MG, QD
     Route: 048
     Dates: start: 20120807, end: 20120820
  5. REBETOL [Suspect]
     Dosage: 200 MG, QD
     Route: 048
     Dates: start: 20120821, end: 20120903
  6. REBETOL [Suspect]
     Dosage: 200 MG, QOD
     Route: 048
     Dates: start: 20120904, end: 20130129
  7. PEGINTERFERON ALFA-2B [Suspect]
     Indication: CHRONIC HEPATITIS C
     Dosage: 1.5 ?G/KG, QW
     Route: 058
     Dates: start: 20120717, end: 20120910
  8. PEGINTERFERON ALFA-2B [Suspect]
     Dosage: 1.4 ?G/KG, QW
     Route: 058
     Dates: start: 20120911, end: 20120917
  9. PEGINTERFERON ALFA-2B [Suspect]
     Dosage: 0.9 ?G/KG, QW
     Route: 058
     Dates: start: 20120918, end: 20121001
  10. PEGINTERFERON ALFA-2B [Suspect]
     Dosage: 0.7 ?G/KG, QW
     Route: 058
     Dates: start: 20121002
  11. PEGINTERFERON ALFA-2B [Suspect]
     Dosage: 1.0 ?G/KG, QW
     Route: 058
     Dates: start: 20121009, end: 20130129
  12. ALDACTONE A [Concomitant]
     Dosage: 50 MG, QD
     Route: 048
  13. LUPRAC [Concomitant]
     Dosage: 16 MG, QD
     Route: 048
  14. DEPAS [Concomitant]
     Dosage: UNK, PRN, QD
     Route: 048
  15. DEPAS [Concomitant]
     Dosage: 0.5 MG, QD
     Route: 048
  16. URSO [Concomitant]
     Dosage: 600 MG, QD
     Route: 048
     Dates: end: 20120831
  17. EPADEL-S [Concomitant]
     Dosage: 1800 MG, QD
     Route: 048
     Dates: end: 20120831
  18. AZULENE-GLUTAMINE FINE GRANULE [Concomitant]
     Dosage: 1.5 G, QD
     Route: 048
     Dates: start: 20120717
  19. MAGNESIUM OXIDE [Concomitant]
     Dosage: 1.5 G, QD
     Route: 048
  20. PIMOBENDAN [Concomitant]
     Dosage: 2.5 MG, QD
     Route: 048
  21. BAYASPIRIN [Concomitant]
     Dosage: 100 MG, QD
     Route: 048

REACTIONS (1)
  - White blood cell count decreased [Recovered/Resolved]
